FAERS Safety Report 17430112 (Version 1)
Quarter: 2020Q1

REPORT INFORMATION
  Report Type: Spontaneous
  Country: PR (occurrence: PR)
  Receive Date: 20200218
  Receipt Date: 20200218
  Transmission Date: 20200409
  Serious: No
  Sender: FDA-Public Use
  Company Number: PR-PFIZER INC-2020069157

PATIENT
  Age: 89 Year
  Sex: Female
  Weight: 55.78 kg

DRUGS (1)
  1. IBRANCE [Suspect]
     Active Substance: PALBOCICLIB
     Dosage: 75 MG, CYCLIC (1 CAP 21 DAYS, 7 DAYS OFF )
     Route: 048
     Dates: start: 20190102

REACTIONS (3)
  - Product dose omission [Unknown]
  - Fall [Unknown]
  - Influenza [Unknown]

NARRATIVE: CASE EVENT DATE: 20200107
